FAERS Safety Report 15392164 (Version 1)
Quarter: 2018Q3

REPORT INFORMATION
  Report Type: Spontaneous
  Country: US (occurrence: US)
  Receive Date: 20180910
  Receipt Date: 20180910
  Transmission Date: 20181010
  Serious: No
  Sender: FDA-Public Use
  Company Number: None

PATIENT
  Age: 65 Year
  Sex: Male

DRUGS (1)
  1. TALTZ [Suspect]
     Active Substance: IXEKIZUMAB
     Indication: PSORIASIS
     Dosage: INJECT 80MG (1 PEN ) SUBCUTANEOUSLY EERY 4 WEEKS AS DIRECTED
     Route: 042
     Dates: start: 201804

REACTIONS (2)
  - Dysphagia [None]
  - Oesophageal candidiasis [None]
